FAERS Safety Report 8033798-4 (Version None)
Quarter: 2012Q1

REPORT INFORMATION
  Report Type: 
  Country: None (occurrence: None)
  Receive Date: 20120110
  Receipt Date: 20120106
  Transmission Date: 20120608
  Serious: No
  Sender: FDA-Public Use
  Company Number: US-PFIZER INC-2012004077

PATIENT
  Sex: Male
  Weight: 72.6 kg

DRUGS (2)
  1. MORPHINE [Concomitant]
     Indication: BACK PAIN
     Dosage: UNK
  2. SUTENT [Suspect]
     Indication: RENAL CANCER
     Dosage: 50 MG, 1X/DAY
     Route: 048
     Dates: start: 20120105

REACTIONS (1)
  - BLOOD URINE PRESENT [None]
